FAERS Safety Report 22084363 (Version 1)
Quarter: 2023Q1

REPORT INFORMATION
  Report Type: Spontaneous
  Country: US (occurrence: US)
  Receive Date: 20230310
  Receipt Date: 20230310
  Transmission Date: 20230417
  Serious: Yes (Other)
  Sender: FDA-Public Use
  Company Number: US-TEVA-2023-US-2862732

PATIENT
  Age: 39 Year
  Sex: Female

DRUGS (1)
  1. AJOVY [Suspect]
     Active Substance: FREMANEZUMAB-VFRM
     Indication: Migraine prophylaxis
     Dosage: 225/1.5 MG/ML
     Route: 065
     Dates: start: 202206

REACTIONS (6)
  - Corneal graft rejection [Unknown]
  - Blindness [Unknown]
  - Blindness transient [Unknown]
  - Cataract [Unknown]
  - Vision blurred [Unknown]
  - Eye inflammation [Unknown]

NARRATIVE: CASE EVENT DATE: 20221101
